FAERS Safety Report 10448710 (Version 3)
Quarter: 2014Q4

REPORT INFORMATION
  Report Type: Spontaneous
  Country: AU (occurrence: AU)
  Receive Date: 20140912
  Receipt Date: 20141121
  Transmission Date: 20150528
  Serious: Yes (Hospitalization, Other)
  Sender: FDA-Public Use
  Company Number: AU-ABBVIE-14K-008-1280881-00

PATIENT
  Sex: Female

DRUGS (4)
  1. DEXAMETHASONE. [Suspect]
     Active Substance: DEXAMETHASONE
     Indication: PRODUCT USED FOR UNKNOWN INDICATION
     Route: 065
  2. HUMIRA [Suspect]
     Active Substance: ADALIMUMAB
     Indication: INTESTINAL FISTULA
  3. WARFARIN [Concomitant]
     Active Substance: WARFARIN
     Indication: HAEMORRHAGE
  4. HUMIRA [Suspect]
     Active Substance: ADALIMUMAB
     Indication: CROHN^S DISEASE
     Route: 065
     Dates: start: 201301

REACTIONS (7)
  - Mobility decreased [Unknown]
  - Back disorder [Unknown]
  - Swelling face [Unknown]
  - Depression [Unknown]
  - Back pain [Unknown]
  - Emotional distress [Unknown]
  - Crying [Unknown]
